FAERS Safety Report 8891117 (Version 6)
Quarter: 2014Q2

REPORT INFORMATION
  Report Type: Spontaneous
  Country: US (occurrence: US)
  Receive Date: 20121107
  Receipt Date: 20140407
  Transmission Date: 20141212
  Serious: Yes (Hospitalization, Other)
  Sender: FDA-Public Use
  Company Number: US-009507513-1211USA002241

PATIENT
  Sex: Female

DRUGS (6)
  1. FOSAMAX [Suspect]
     Indication: OSTEOPOROSIS
     Dosage: 10 MG, QD
     Route: 048
     Dates: start: 199710, end: 200908
  2. FOSAMAX [Suspect]
     Dosage: 70 MG, QW
     Route: 048
     Dates: end: 200908
  3. FOSAMAX [Suspect]
     Route: 048
  4. ALENDRONATE SODIUM [Suspect]
     Dosage: 70 MG, UNK
     Route: 048
  5. CALCIUM (UNSPECIFIED) [Concomitant]
     Dosage: 1500 MG, QD
     Dates: start: 1980
  6. SYNTHROID [Concomitant]
     Indication: HYPOTHYROIDISM
     Dosage: 2.5 MG, UNK

REACTIONS (28)
  - Femur fracture [Unknown]
  - Open reduction of fracture [Unknown]
  - Arthrodesis [Unknown]
  - Rotator cuff repair [Unknown]
  - Fall [Unknown]
  - Spinal column stenosis [Unknown]
  - Spondylolisthesis [Unknown]
  - Synovial cyst [Unknown]
  - Spinal laminectomy [Unknown]
  - Cardiac pacemaker insertion [Unknown]
  - Breast cancer female [Unknown]
  - Low turnover osteopathy [Unknown]
  - Radiotherapy [Unknown]
  - Polyarthritis [Not Recovered/Not Resolved]
  - Rotator cuff syndrome [Unknown]
  - Atrioventricular block complete [Unknown]
  - Anaemia [Unknown]
  - Exercise tolerance decreased [Unknown]
  - Fatigue [Unknown]
  - Tricuspid valve disease [Unknown]
  - Mitral valve incompetence [Unknown]
  - Aortic valve incompetence [Unknown]
  - Local swelling [Unknown]
  - Macular degeneration [Unknown]
  - Blood glucose abnormal [Unknown]
  - Cor pulmonale [Unknown]
  - Tooth extraction [Unknown]
  - Osteopenia [Unknown]
